FAERS Safety Report 8840597 (Version 2)
Quarter: 2012Q4

REPORT INFORMATION
  Report Type: 
  Country: US (occurrence: US)
  Receive Date: 20121015
  Receipt Date: 20121206
  Transmission Date: 20130627
  Serious: Yes (Other)
  Sender: FDA-Public Use
  Company Number: US-ROCHE-1140309

PATIENT
  Age: 74 Year
  Sex: Female

DRUGS (4)
  1. ZELBORAF [Suspect]
     Indication: MALIGNANT MELANOMA
     Route: 048
     Dates: start: 20120914, end: 20120928
  2. HCTZ [Concomitant]
     Indication: HYPERTENSION
     Route: 048
  3. NADOLOL [Concomitant]
     Indication: HYPERTENSION
     Route: 048
  4. LOVASTATIN [Concomitant]
     Route: 048

REACTIONS (5)
  - Electrocardiogram QT prolonged [Recovered/Resolved]
  - Hyponatraemia [Recovered/Resolved]
  - Hepatic function abnormal [Recovered/Resolved]
  - Renal failure [Recovered/Resolved]
  - Laboratory test abnormal [Not Recovered/Not Resolved]
